FAERS Safety Report 4376280-8 (Version None)
Quarter: 2004Q2

REPORT INFORMATION
  Report Type: 
  Country: None (occurrence: None)
  Receive Date: 20040608
  Receipt Date: 20030218
  Transmission Date: 20050107
  Serious: Yes (Hospitalization, Other)
  Sender: FDA-Public Use
  Company Number: 200310574BCC

PATIENT
  Age: 64 Year
  Sex: Female
  Weight: 126.1 kg

DRUGS (1)
  1. ALEVE [Suspect]
     Indication: BACK PAIN
     Dosage: 440 MG, PRN, ORAL
     Route: 048
     Dates: start: 19980101, end: 20030204

REACTIONS (2)
  - ABDOMINAL PAIN UPPER [None]
  - PEPTIC ULCER [None]
